FAERS Safety Report 26149962 (Version 1)
Quarter: 2025Q4

REPORT INFORMATION
  Report Type: Spontaneous
  Country: US (occurrence: US)
  Receive Date: 20251212
  Receipt Date: 20251212
  Transmission Date: 20260117
  Serious: No
  Sender: ALCON
  Company Number: US-ALCON LABORATORIES-ALC2025US005624

PATIENT
  Sex: Female

DRUGS (1)
  1. ACOLTREMON [Suspect]
     Active Substance: ACOLTREMON
     Indication: Asthma
     Dosage: UNK
     Route: 047
     Dates: start: 20250918, end: 20250930

REACTIONS (3)
  - Dyspnoea [Unknown]
  - Wheezing [Unknown]
  - Asthma [Not Recovered/Not Resolved]
